FAERS Safety Report 8081269-1 (Version None)
Quarter: 2012Q1

REPORT INFORMATION
  Report Type: 
  Country: None (occurrence: None)
  Receive Date: 20120130
  Receipt Date: 20120126
  Transmission Date: 20120608
  Serious: Yes (Other)
  Sender: FDA-Public Use
  Company Number: US-ROCHE-1034346

PATIENT
  Sex: Female

DRUGS (1)
  1. ACCUTANE [Suspect]
     Indication: ACNE
     Dates: start: 20041101, end: 20050401

REACTIONS (2)
  - INJURY [None]
  - EMOTIONAL DISTRESS [None]
